FAERS Safety Report 18381990 (Version 1)
Quarter: 2020Q4

REPORT INFORMATION
  Report Type: Spontaneous
  Country: US (occurrence: US)
  Receive Date: 20201013
  Receipt Date: 20201013
  Transmission Date: 20210114
  Serious: Yes (Other)
  Sender: FDA-Public Use
  Company Number: None

PATIENT
  Age: 63 Year
  Sex: Female

DRUGS (9)
  1. DARAPRIM [Suspect]
     Active Substance: PYRIMETHAMINE
     Indication: TOXOPLASMOSIS
     Route: 048
     Dates: start: 20200903, end: 20200910
  2. LEUCOVORIN 10MG [Concomitant]
  3. TIVICAY [Concomitant]
     Active Substance: DOLUTEGRAVIR SODIUM
  4. DARAPRIM [Suspect]
     Active Substance: PYRIMETHAMINE
     Indication: ENCEPHALITIS
     Route: 048
     Dates: start: 20200903, end: 20200910
  5. LEVETIRACETAM 750MG [Concomitant]
     Active Substance: LEVETIRACETAM
  6. ACETAMINOPHEN 325MG [Concomitant]
  7. DESCOVY [Concomitant]
     Active Substance: EMTRICITABINE\TENOFOVIR ALAFENAMIDE FUMARATE
  8. SENNA 8.6MG [Concomitant]
  9. OXCARBAZEPINE 600MG [Concomitant]

REACTIONS (2)
  - Haematuria [None]
  - Therapy cessation [None]

NARRATIVE: CASE EVENT DATE: 20200910
